FAERS Safety Report 5183457-0 (Version None)
Quarter: 2006Q4

REPORT INFORMATION
  Report Type: 
  Country: None (occurrence: None)
  Receive Date: 20061220
  Receipt Date: 20060113
  Transmission Date: 20070319
  Serious: No
  Sender: FDA-Public Use
  Company Number: US-GLAXOSMITHKLINE-A0589181A

PATIENT
  Age: 62 Year
  Sex: Male

DRUGS (2)
  1. NICODERM CQ [Suspect]
  2. NICORETTE [Suspect]

REACTIONS (2)
  - HICCUPS [None]
  - INSOMNIA [None]
